FAERS Safety Report 6710470-1 (Version None)
Quarter: 2010Q2

REPORT INFORMATION
  Report Type: 
  Country: None (occurrence: None)
  Receive Date: 20100504
  Receipt Date: 20100428
  Transmission Date: 20101027
  Serious: Yes (Hospitalization)
  Sender: FDA-Public Use
  Company Number: CHPA2010US07662

PATIENT
  Age: 80 Year
  Sex: Female

DRUGS (2)
  1. EXCEDRIN TENSION HEADACHE(NCH) [Suspect]
     Indication: MIGRAINE
     Dosage: 2 DF, QD
     Route: 048
  2. EXCEDRIN TENSION HEADACHE(NCH) [Suspect]
     Indication: BACK PAIN

REACTIONS (4)
  - ARRHYTHMIA [None]
  - COUGH [None]
  - FLUID RETENTION [None]
  - INTENTIONAL DRUG MISUSE [None]
